FAERS Safety Report 8120327-X (Version None)
Quarter: 2012Q1

REPORT INFORMATION
  Report Type: 
  Country: None (occurrence: None)
  Receive Date: 20120207
  Receipt Date: 20110624
  Transmission Date: 20120608
  Serious: Yes (Hospitalization)
  Sender: FDA-Public Use
  Company Number: US-GLAXOSMITHKLINE-A0935940A

PATIENT
  Age: 69 Year
  Sex: Female

DRUGS (1)
  1. AVANDIA [Suspect]
     Indication: DIABETES MELLITUS
     Dosage: 2MG PER DAY
     Route: 048
     Dates: start: 20070827, end: 20081101

REACTIONS (9)
  - CARDIAC FAILURE CONGESTIVE [None]
  - DISORIENTATION [None]
  - MUSCULAR WEAKNESS [None]
  - CHEST PAIN [None]
  - HYPOAESTHESIA [None]
  - VISION BLURRED [None]
  - BREATH ODOUR [None]
  - DYSGEUSIA [None]
  - DIZZINESS [None]
